FAERS Safety Report 24946587 (Version 1)
Quarter: 2025Q1

REPORT INFORMATION
  Report Type: Spontaneous
  Country: IN (occurrence: IN)
  Receive Date: 20250210
  Receipt Date: 20250210
  Transmission Date: 20250409
  Serious: Yes (Disabling)
  Sender: Unknown Manufacturer
  Company Number: IN-MLMSERVICE-20250114-PI348451-00123-1

PATIENT
  Age: 72 Year
  Sex: Female

DRUGS (2)
  1. DOCETAXEL [Suspect]
     Active Substance: DOCETAXEL
     Indication: Uterine cancer
     Dosage: 60 MG/M2) WAS ADMINISTERED INTRAVENOUSLY (IV) FOR 1 H AT 3 WEEKS INTERVAL
     Route: 042
  2. CARBOPLATIN [Suspect]
     Active Substance: CARBOPLATIN
     Indication: Uterine cancer
     Dosage: (6 MG/ML/MIN) ADMINISTERED INTRAVENOUSLY FOR 1 H AT 3 WEEKS INTERVAL

REACTIONS (1)
  - Retinitis pigmentosa [Not Recovered/Not Resolved]
